FAERS Safety Report 9934936 (Version 1)
Quarter: 2014Q1

REPORT INFORMATION
  Report Type: Report from Study
  Country: US (occurrence: US)
  Receive Date: 20140228
  Receipt Date: 20140228
  Transmission Date: 20141002
  Serious: Yes (Hospitalization)
  Sender: FDA-Public Use
  Company Number: PHHY2014US023861

PATIENT
  Age: 31 Year
  Sex: Female

DRUGS (32)
  1. XOLAIR [Suspect]
     Indication: ASTHMA
     Dosage: 300 MG, 1 IN 4 WEEK
     Route: 058
     Dates: start: 201108
  2. XOLAIR [Suspect]
     Dosage: 150 MG, (2 INJECTIONS EVERY 4 WEEKS)
     Route: 058
  3. NAPROXEN [Suspect]
     Dosage: UNK
  4. DIFLUCAN [Concomitant]
     Dosage: 150 MG, UNK
  5. PROAIR (SALBUTAMOL SULFATE) [Concomitant]
     Dosage: 108 UG/ACT, UNK
  6. MONTELUKAST SODIUM [Concomitant]
     Dosage: 10 MG, UNK
  7. BUDESONIDE [Concomitant]
     Dosage: UNK
  8. CLOTRIMAZOLE [Concomitant]
     Dosage: 10 MG, UNK
  9. AFRINE [Concomitant]
     Dosage: UNK UKN, UNK
  10. TRIAMCINOLONE ACETONIDE [Concomitant]
     Dosage: 55 UG/ACT, UNK
  11. MOMETASONE FUROATE [Concomitant]
     Dosage: UNK UKN, UNK
  12. LEVOCETIRIZINE HYDROCHLORIDE [Concomitant]
     Dosage: 5 MG, UNK
  13. DULERA [Concomitant]
     Dosage: UNK (200-5 UG/ACT)
  14. BEPREVE [Concomitant]
     Dosage: UNK UKN, UNK
  15. PATANASE [Concomitant]
     Dosage: UNK UKN, UNK
  16. ALBUTEROL SULFATE [Concomitant]
     Dosage: 1 DF, (0.083%)
  17. JUNEL [Concomitant]
     Dosage: UNK (1-20 MG-UG)
  18. DEXILANT [Concomitant]
     Dosage: 60 MG, UNK
  19. TRAMADOL HCL [Concomitant]
     Dosage: 150 MG, UNK
  20. CARAFATE [Concomitant]
     Dosage: UNK(1 GM/10ML)
  21. XARELTO [Concomitant]
     Dosage: 10 MG, UNK
  22. PREDNISONE [Concomitant]
     Dosage: 10 MG, UNK
  23. PREDNISONE [Concomitant]
     Dosage: 30 MG, UNK
  24. PREDNISONE [Concomitant]
     Dosage: 40 MG, UNK
  25. ZOFRAN [Concomitant]
     Dosage: UNK
  26. ZYRTEC [Concomitant]
     Dosage: 10 MG, UNK
  27. ASPIRIN [Concomitant]
     Dosage: UNK UKN, UNK
  28. DOXYCYCLINE [Concomitant]
     Dosage: 100 MG, UNK
  29. PROVENTIL HFA//SALBUTAMOL SULFATE [Concomitant]
     Dosage: 108 UG, UNK
  30. SINGULAIR [Concomitant]
     Dosage: 10 MG, UNK
  31. NASACORT AQ [Concomitant]
     Dosage: 55 UG, UNK
  32. PULMICORT [Concomitant]
     Dosage: UNK 0.5 MG/2 ML

REACTIONS (14)
  - H1N1 influenza [Unknown]
  - Adrenal insufficiency [Unknown]
  - Asthma [Unknown]
  - Pneumonia [Unknown]
  - Bronchitis [Unknown]
  - Cushingoid [Unknown]
  - Oedema [Unknown]
  - Arthritis [Unknown]
  - Nephrolithiasis [Unknown]
  - Migraine [Unknown]
  - Status asthmaticus [Unknown]
  - Sinusitis [Unknown]
  - Upper respiratory tract infection [Unknown]
  - Weight increased [Unknown]
